FAERS Safety Report 18935057 (Version 2)
Quarter: 2021Q1

REPORT INFORMATION
  Report Type: Spontaneous
  Country: IT (occurrence: IT)
  Receive Date: 20210224
  Receipt Date: 20210316
  Transmission Date: 20210420
  Serious: Yes (Death, Other)
  Sender: FDA-Public Use
  Company Number: IT-BRISTOL-MYERS SQUIBB COMPANY-BMS-2021-017340

PATIENT
  Age: 90 Year
  Sex: Female

DRUGS (2)
  1. ZAVICEFTA [Suspect]
     Active Substance: AVIBACTAM SODIUM\CEFTAZIDIME
     Indication: BACTERIAL SEPSIS
     Dosage: 1.25 GRAM, QD
     Route: 042
     Dates: start: 20210207, end: 20210209
  2. AZTREONAM. [Suspect]
     Active Substance: AZTREONAM
     Indication: BACTERIAL SEPSIS
     Dosage: 1 GRAM, QD
     Route: 042
     Dates: start: 20210207, end: 20210209

REACTIONS (1)
  - Thrombocytopenia [Fatal]

NARRATIVE: CASE EVENT DATE: 20210207
